FAERS Safety Report 20202385 (Version 1)
Quarter: 2021Q4

REPORT INFORMATION
  Report Type: Spontaneous
  Country: AT (occurrence: AT)
  Receive Date: 20211217
  Receipt Date: 20211217
  Transmission Date: 20220303
  Serious: Yes (Other)
  Sender: FDA-Public Use
  Company Number: AT-009507513-2112AUT004606

PATIENT
  Age: 56 Year
  Sex: Male

DRUGS (3)
  1. PEMBROLIZUMAB [Suspect]
     Active Substance: PEMBROLIZUMAB
     Indication: Metastatic bronchial carcinoma
     Dosage: UNK, CYCLICAL
  2. PEMETREXED [Concomitant]
     Active Substance: PEMETREXED
     Indication: Metastatic bronchial carcinoma
     Dosage: UNK, CYCLICAL
  3. CARBOPLATIN [Concomitant]
     Active Substance: CARBOPLATIN
     Indication: Metastatic bronchial carcinoma
     Dosage: UNK, CYCLICAL

REACTIONS (1)
  - Subacute cutaneous lupus erythematosus [Recovered/Resolved]
